FAERS Safety Report 5972346-7 (Version None)
Quarter: 2008Q4

REPORT INFORMATION
  Report Type: 
  Country: None (occurrence: None)
  Receive Date: 20081201
  Receipt Date: 20081009
  Transmission Date: 20090506
  Serious: No
  Sender: FDA-Public Use
  Company Number: US-TEVA-178523USA

PATIENT
  Sex: Male

DRUGS (2)
  1. AZILECT [Suspect]
     Indication: PARKINSON'S DISEASE
     Route: 048
     Dates: start: 20080926
  2. SINEMET [Concomitant]
     Dosage: 25/100 IR QAM, 25/100 SR QBID, 50/200 SR BID

REACTIONS (1)
  - XANTHOPSIA [None]
